FAERS Safety Report 9400359 (Version 1)
Quarter: 2013Q3

REPORT INFORMATION
  Report Type: Spontaneous
  Country: AU (occurrence: AU)
  Receive Date: 20130715
  Receipt Date: 20130715
  Transmission Date: 20140515
  Serious: Yes (Other)
  Sender: FDA-Public Use
  Company Number: AU-ASTRAZENECA-2013SE51657

PATIENT
  Sex: 0

DRUGS (1)
  1. NAROPIN [Suspect]
     Indication: OPHTHALMOLOGICAL EXAMINATION
     Route: 065

REACTIONS (1)
  - Blindness [Unknown]
